FAERS Safety Report 22397384 (Version 3)
Quarter: 2023Q4

REPORT INFORMATION
  Report Type: Report from Study
  Country: DE (occurrence: DE)
  Receive Date: 20230602
  Receipt Date: 20231030
  Transmission Date: 20240109
  Serious: Yes (Hospitalization, Other)
  Sender: FDA-Public Use
  Company Number: DE-TAKEDA-2023TUS053538

PATIENT
  Age: 56 Year
  Sex: Male
  Weight: 142 kg

DRUGS (50)
  1. PARATHYROID HORMONE [Suspect]
     Active Substance: PARATHYROID HORMONE
     Indication: Hypoparathyroidism
     Dosage: 50 MICROGRAM, QD
     Route: 058
     Dates: start: 202008, end: 202012
  2. PARATHYROID HORMONE [Suspect]
     Active Substance: PARATHYROID HORMONE
     Indication: Hypoparathyroidism
     Dosage: 50 MICROGRAM, QD
     Route: 058
     Dates: start: 202008, end: 202012
  3. PARATHYROID HORMONE [Suspect]
     Active Substance: PARATHYROID HORMONE
     Indication: Hypoparathyroidism
     Dosage: 50 MICROGRAM, QD
     Route: 058
     Dates: start: 202008, end: 202012
  4. PARATHYROID HORMONE [Suspect]
     Active Substance: PARATHYROID HORMONE
     Dosage: 100 MICROGRAM, QD
     Route: 058
     Dates: start: 202012, end: 202101
  5. PARATHYROID HORMONE [Suspect]
     Active Substance: PARATHYROID HORMONE
     Dosage: 100 MICROGRAM, QD
     Route: 058
     Dates: start: 202012, end: 202101
  6. PARATHYROID HORMONE [Suspect]
     Active Substance: PARATHYROID HORMONE
     Dosage: 100 MICROGRAM, QD
     Route: 058
     Dates: start: 202012, end: 202101
  7. PARATHYROID HORMONE [Suspect]
     Active Substance: PARATHYROID HORMONE
     Dosage: 11.11 MICROGRAM
     Route: 058
     Dates: start: 202101, end: 20210701
  8. PARATHYROID HORMONE [Suspect]
     Active Substance: PARATHYROID HORMONE
     Dosage: 11.11 MICROGRAM
     Route: 058
     Dates: start: 202101, end: 20210701
  9. PARATHYROID HORMONE [Suspect]
     Active Substance: PARATHYROID HORMONE
     Dosage: 11.11 MICROGRAM
     Route: 058
     Dates: start: 202101, end: 20210701
  10. PARATHYROID HORMONE [Suspect]
     Active Substance: PARATHYROID HORMONE
     Dosage: 100 MICROGRAM, QD
     Route: 058
     Dates: start: 20210702, end: 20211028
  11. PARATHYROID HORMONE [Suspect]
     Active Substance: PARATHYROID HORMONE
     Dosage: 100 MICROGRAM, QD
     Route: 058
     Dates: start: 20210702, end: 20211028
  12. PARATHYROID HORMONE [Suspect]
     Active Substance: PARATHYROID HORMONE
     Dosage: 100 MICROGRAM, QD
     Route: 058
     Dates: start: 20210702, end: 20211028
  13. PARATHYROID HORMONE [Suspect]
     Active Substance: PARATHYROID HORMONE
     Dosage: 11.11 MICROGRAM
     Route: 058
     Dates: start: 2021, end: 2021
  14. PARATHYROID HORMONE [Suspect]
     Active Substance: PARATHYROID HORMONE
     Dosage: 11.11 MICROGRAM
     Route: 058
     Dates: start: 2021, end: 2021
  15. PARATHYROID HORMONE [Suspect]
     Active Substance: PARATHYROID HORMONE
     Dosage: 11.11 MICROGRAM
     Route: 058
     Dates: start: 2021, end: 2021
  16. PARATHYROID HORMONE [Suspect]
     Active Substance: PARATHYROID HORMONE
     Dosage: 100 MICROGRAM, QD
     Route: 058
     Dates: start: 2021
  17. PARATHYROID HORMONE [Suspect]
     Active Substance: PARATHYROID HORMONE
     Dosage: 100 MICROGRAM, QD
     Route: 058
     Dates: start: 2021
  18. PARATHYROID HORMONE [Suspect]
     Active Substance: PARATHYROID HORMONE
     Dosage: 100 MICROGRAM, QD
     Route: 058
     Dates: start: 2021
  19. LEVOTHYROXINE SODIUM [Concomitant]
     Active Substance: LEVOTHYROXINE SODIUM
     Indication: Hypothyroidism
     Dosage: UNK
     Route: 048
  20. LIOTHYRONINE HYDROCHLORIDE [Concomitant]
     Active Substance: LIOTHYRONINE HYDROCHLORIDE
     Indication: Hypothyroidism
     Dosage: UNK
     Route: 048
     Dates: end: 2020
  21. RAMIPRIL [Concomitant]
     Active Substance: RAMIPRIL
     Indication: Hypertension
     Dosage: UNK
     Route: 048
     Dates: end: 2021
  22. METFORMIN [Concomitant]
     Active Substance: METFORMIN HYDROCHLORIDE
     Indication: Diabetes mellitus
     Dosage: UNK
     Route: 048
     Dates: start: 2020, end: 2021
  23. METFORMIN [Concomitant]
     Active Substance: METFORMIN HYDROCHLORIDE
     Dosage: UNK
     Route: 048
     Dates: start: 202201
  24. OZEMPIC [Concomitant]
     Active Substance: SEMAGLUTIDE
     Indication: Diabetes mellitus
     Dosage: UNK
     Route: 058
     Dates: start: 2021, end: 2021
  25. CANDESARTAN [Concomitant]
     Active Substance: CANDESARTAN
     Indication: Hypertension
     Dosage: UNK
     Route: 048
     Dates: start: 2021, end: 2023
  26. TRULICITY [Concomitant]
     Active Substance: DULAGLUTIDE
     Indication: Diabetes mellitus
     Dosage: UNK
     Route: 058
     Dates: start: 2021
  27. TESTOSTERONE [Concomitant]
     Active Substance: TESTOSTERONE
     Indication: Androgen deficiency
     Dosage: UNK
     Route: 050
     Dates: start: 202109
  28. VITAMIN B12 [Concomitant]
     Active Substance: CYANOCOBALAMIN
     Indication: Vitamin B12 deficiency
     Dosage: UNK
     Route: 048
     Dates: start: 2021
  29. HYDROTALCITE [Concomitant]
     Active Substance: HYDROTALCITE
     Indication: Dyspepsia
     Dosage: UNK
     Route: 048
     Dates: start: 2021
  30. EMPAGLIFLOZIN [Concomitant]
     Active Substance: EMPAGLIFLOZIN
     Indication: Diabetes mellitus
     Dosage: UNK
     Route: 048
     Dates: start: 2021
  31. AMOXICILLIN [Concomitant]
     Active Substance: AMOXICILLIN
     Indication: Pneumonia
     Dosage: UNK
     Route: 048
     Dates: start: 202301, end: 202301
  32. CLAVULANIC ACID [Concomitant]
     Active Substance: CLAVULANIC ACID
     Indication: Pneumonia
     Dosage: UNK
     Route: 048
     Dates: start: 202301, end: 202301
  33. CLARITHROMYCIN [Concomitant]
     Active Substance: CLARITHROMYCIN
     Indication: Pneumonia
     Dosage: UNK
     Route: 048
     Dates: start: 202301, end: 202301
  34. CLOPIDOGREL [Concomitant]
     Active Substance: CLOPIDOGREL BISULFATE
     Indication: Coronary artery disease
     Dosage: UNK
     Route: 048
     Dates: start: 202302
  35. ASPIRIN [Concomitant]
     Active Substance: ASPIRIN
     Indication: Coronary artery disease
     Dosage: UNK
     Route: 048
     Dates: start: 202302
  36. VALSARTAN [Concomitant]
     Active Substance: VALSARTAN
     Indication: Hypertension
     Dosage: UNK
     Route: 048
     Dates: start: 202302
  37. ATORVASTATIN [Concomitant]
     Active Substance: ATORVASTATIN
     Indication: Coronary artery disease
     Dosage: UNK
     Route: 048
     Dates: start: 202302
  38. PANTOPRAZOLE SODIUM [Concomitant]
     Active Substance: PANTOPRAZOLE SODIUM
     Indication: Gastric ulcer
     Dosage: UNK
     Route: 048
     Dates: start: 202302
  39. METAMIZOLE [Concomitant]
     Active Substance: METAMIZOLE
     Dosage: UNK
     Route: 048
     Dates: start: 202301, end: 202301
  40. VITAMIN D [Concomitant]
     Active Substance: VITAMIN D NOS
     Dosage: 20000 INTERNATIONAL UNIT, QD
     Route: 065
     Dates: end: 20200710
  41. VITAMIN D [Concomitant]
     Active Substance: VITAMIN D NOS
     Dosage: 800 INTERNATIONAL UNIT
     Route: 065
     Dates: end: 20200710
  42. VITAMIN D [Concomitant]
     Active Substance: VITAMIN D NOS
     Dosage: 400 INTERNATIONAL UNIT, BID
     Route: 065
     Dates: start: 202007
  43. VITAMIN D [Concomitant]
     Active Substance: VITAMIN D NOS
     Dosage: 1000 INTERNATIONAL UNIT, QD
     Route: 065
     Dates: start: 20210204, end: 2021
  44. VITAMIN D [Concomitant]
     Active Substance: VITAMIN D NOS
     Dosage: 2000 INTERNATIONAL UNIT, QD
     Route: 065
     Dates: start: 2021, end: 202204
  45. VITAMIN D [Concomitant]
     Active Substance: VITAMIN D NOS
     Dosage: 1000 INTERNATIONAL UNIT, QD
     Route: 065
     Dates: start: 202204
  46. CALCIUM CARBONATE [Concomitant]
     Active Substance: CALCIUM CARBONATE
     Dosage: 2500 MILLIGRAM
     Route: 065
     Dates: end: 20200710
  47. CALCIUM CARBONATE [Concomitant]
     Active Substance: CALCIUM CARBONATE
     Dosage: 1250 MILLIGRAM, BID
     Route: 065
     Dates: start: 202007
  48. ALFACALCIDOL [Concomitant]
     Active Substance: ALFACALCIDOL
     Dosage: 0.5 MICROGRAM, BID
     Route: 065
     Dates: start: 202007, end: 202012
  49. ALFACALCIDOL [Concomitant]
     Active Substance: ALFACALCIDOL
     Dosage: 0.25 MICROGRAM, QD
     Route: 065
     Dates: start: 202012, end: 2021
  50. MAGNESIUM [Concomitant]
     Active Substance: MAGNESIUM
     Dosage: 400 MILLIGRAM, QD
     Route: 065
     Dates: start: 202007

REACTIONS (2)
  - Pneumonia [Recovered/Resolved]
  - Coronary artery disease [Recovered/Resolved]

NARRATIVE: CASE EVENT DATE: 20230114
